APPROVED DRUG PRODUCT: LEVOLEUCOVORIN CALCIUM
Active Ingredient: LEVOLEUCOVORIN CALCIUM
Strength: EQ 50MG BASE/VIAL
Dosage Form/Route: POWDER;INTRAVENOUS
Application: A211003 | Product #001
Applicant: MEITHEAL PHARMACEUTICALS INC
Approved: Aug 22, 2019 | RLD: No | RS: No | Type: DISCN